FAERS Safety Report 16532355 (Version 1)
Quarter: 2019Q3

REPORT INFORMATION
  Report Type: Spontaneous
  Country: CN (occurrence: CN)
  Receive Date: 20190704
  Receipt Date: 20190704
  Transmission Date: 20191004
  Serious: Yes (Other)
  Sender: FDA-Public Use
  Company Number: CN-PFIZER INC-2019281059

PATIENT
  Age: 85 Year
  Sex: Male
  Weight: 48 kg

DRUGS (2)
  1. VFEND [Suspect]
     Active Substance: VORICONAZOLE
     Indication: INFECTION
     Dosage: 0.2 G, 2X/DAY
     Route: 041
     Dates: start: 20190503, end: 20190506
  2. VFEND [Suspect]
     Active Substance: VORICONAZOLE
     Indication: CHRONIC OBSTRUCTIVE PULMONARY DISEASE

REACTIONS (4)
  - Dysphoria [Recovering/Resolving]
  - Nervous system disorder [Recovering/Resolving]
  - Hallucination [Recovering/Resolving]
  - Restlessness [Recovering/Resolving]

NARRATIVE: CASE EVENT DATE: 20190504
